FAERS Safety Report 19786509 (Version 1)
Quarter: 2021Q3

REPORT INFORMATION
  Report Type: Other
  Country: CA (occurrence: CA)
  Receive Date: 20210903
  Receipt Date: 20210903
  Transmission Date: 20211014
  Serious: Yes (Other)
  Sender: FDA-Public Use
  Company Number: CA-NAVINTA LLC-000193

PATIENT
  Sex: Male

DRUGS (1)
  1. INDOMETHACIN. [Suspect]
     Active Substance: INDOMETHACIN
     Indication: VASOCONSTRICTION
     Route: 064

REACTIONS (2)
  - Foetal exposure during pregnancy [Unknown]
  - Ductus arteriosus premature closure [Unknown]
